FAERS Safety Report 4347927-7 (Version None)
Quarter: 2004Q1

REPORT INFORMATION
  Report Type: 
  Country: None (occurrence: None)
  Receive Date: 20040325
  Receipt Date: 20031217
  Transmission Date: 20041129
  Serious: No
  Sender: FDA-Public Use
  Company Number: USA031152804

PATIENT
  Age: 74 Year
  Sex: Female

DRUGS (5)
  1. FORTEO [Suspect]
     Dates: start: 20030101
  2. PLAVIX [Concomitant]
  3. BABY ASPIRIN (ACETYLSALICYCLIC ACID) [Concomitant]
  4. BLOOD PRESSURE MEDICATION [Concomitant]
  5. DIURETIC [Concomitant]

REACTIONS (7)
  - FOOD INTOLERANCE [None]
  - INJECTION SITE ERYTHEMA [None]
  - INJECTION SITE HAEMORRHAGE [None]
  - INJECTION SITE PAIN [None]
  - PAIN [None]
  - RASH ERYTHEMATOUS [None]
  - SWELLING FACE [None]
